FAERS Safety Report 6334947-6 (Version None)
Quarter: 2009Q3

REPORT INFORMATION
  Report Type: 
  Country: None (occurrence: None)
  Receive Date: 20090831
  Receipt Date: 20090824
  Transmission Date: 20100115
  Serious: Yes (Death, Hospitalization)
  Sender: FDA-Public Use
  Company Number: FR-CELGENEUS-056-20785-09042558

PATIENT
  Sex: Male
  Weight: 67 kg

DRUGS (3)
  1. THALIDOMIDE [Suspect]
     Indication: MULTIPLE MYELOMA
     Route: 048
     Dates: start: 20081208, end: 20081222
  2. ALKERAN [Concomitant]
     Indication: MULTIPLE MYELOMA
     Route: 048
     Dates: start: 20090101, end: 20090104
  3. SOLUPRED [Concomitant]
     Indication: MULTIPLE MYELOMA
     Route: 048
     Dates: start: 20090101, end: 20090104

REACTIONS (3)
  - ARTHRITIS [None]
  - CELLULITIS ORBITAL [None]
  - SEPSIS [None]
